FAERS Safety Report 8341549-9 (Version None)
Quarter: 2012Q2

REPORT INFORMATION
  Report Type: 
  Country: None (occurrence: None)
  Receive Date: 20120507
  Receipt Date: 20100326
  Transmission Date: 20120825
  Serious: No
  Sender: FDA-Public Use
  Company Number: US-TEVA-2010001480

PATIENT
  Sex: Female
  Weight: 77.18 kg

DRUGS (1)
  1. TREANDA [Suspect]
     Indication: B-CELL SMALL LYMPHOCYTIC LYMPHOMA
     Dates: start: 20100216

REACTIONS (1)
  - LYMPHOCYTE COUNT INCREASED [None]
